FAERS Safety Report 8053458-3 (Version None)
Quarter: 2012Q1

REPORT INFORMATION
  Report Type: 
  Country: None (occurrence: None)
  Receive Date: 20120118
  Receipt Date: 20120110
  Transmission Date: 20120608
  Serious: Yes (Other)
  Sender: FDA-Public Use
  Company Number: IL-GLAXOSMITHKLINE-B0774888A

PATIENT
  Age: 36 Year
  Sex: Female

DRUGS (1)
  1. CEFUROXIME [Suspect]
     Indication: URINARY TRACT INFECTION
     Route: 065

REACTIONS (2)
  - ABORTION SPONTANEOUS [None]
  - MATERNAL EXPOSURE DURING PREGNANCY [None]
